FAERS Safety Report 7814558-3 (Version None)
Quarter: 2011Q4

REPORT INFORMATION
  Report Type: 
  Country: None (occurrence: None)
  Receive Date: 20111014
  Receipt Date: 20111005
  Transmission Date: 20120403
  Serious: Yes (Hospitalization)
  Sender: FDA-Public Use
  Company Number: FR-MPIJNJ-2011-02454

PATIENT

DRUGS (13)
  1. INNOHEP [Concomitant]
     Dosage: UNK
     Route: 065
  2. BACTRIM [Concomitant]
     Indication: PROPHYLAXIS
     Dosage: UNK DF, UNK
     Route: 048
     Dates: start: 20110523
  3. ACETAMINOPHEN [Concomitant]
     Dosage: 4 G, UNK
     Route: 048
     Dates: start: 20110418, end: 20110518
  4. AMOXICILLIN [Concomitant]
     Indication: PROPHYLAXIS
     Dosage: 2 G, UNK
     Route: 048
     Dates: start: 20110523
  5. REVLIMID [Suspect]
     Indication: MULTIPLE MYELOMA
     Dosage: 25 MG, CYCLIC
     Dates: start: 20110523, end: 20110526
  6. REVLIMID [Suspect]
     Dosage: 20 MG, UNK
     Dates: end: 20110709
  7. ACUPAN [Concomitant]
     Dosage: UNK
     Route: 065
     Dates: start: 20110418, end: 20110518
  8. LEXOMIL [Concomitant]
     Dosage: UNK
     Route: 048
     Dates: start: 20110523
  9. OXYCONTIN [Concomitant]
     Route: 065
  10. VELCADE [Suspect]
     Indication: MULTIPLE MYELOMA
     Dosage: 1.3 MG, CYCLIC
     Route: 065
     Dates: start: 20110523, end: 20110526
  11. DEXAMETHASONE [Suspect]
     Indication: MULTIPLE MYELOMA
     Dosage: 20 MG, CYCLIC
     Route: 065
     Dates: start: 20110523, end: 20110709
  12. VELCADE [Suspect]
     Dosage: 1 MG, UNK
     Dates: end: 20110708
  13. ZELITREX                           /01269701/ [Concomitant]
     Indication: PROPHYLAXIS
     Dosage: 500 MG, BID
     Route: 048
     Dates: start: 20110523

REACTIONS (2)
  - SEPSIS [None]
  - CYST REMOVAL [None]
